FAERS Safety Report 10393114 (Version 2)
Quarter: 2014Q3

REPORT INFORMATION
  Report Type: Spontaneous
  Country: US (occurrence: US)
  Receive Date: 20140819
  Receipt Date: 20140926
  Transmission Date: 20150326
  Serious: No
  Sender: FDA-Public Use
  Company Number: US-BAYER-2014-115521

PATIENT
  Age: 65 Year
  Sex: Male

DRUGS (6)
  1. SIMVASTATIN. [Concomitant]
     Active Substance: SIMVASTATIN
  2. LISINOPRIL. [Concomitant]
     Active Substance: LISINOPRIL
  3. CITALOPRAM [Concomitant]
     Active Substance: CITALOPRAM HYDROBROMIDE
  4. STAXYN [Suspect]
     Active Substance: VARDENAFIL HYDROCHLORIDE TRIHYDRATE
     Indication: ERECTILE DYSFUNCTION
     Dosage: 10 MG, QOD
     Route: 048
     Dates: start: 20140722
  5. GABAPENTIN. [Concomitant]
     Active Substance: GABAPENTIN
  6. LEVITRA [Suspect]
     Active Substance: VARDENAFIL HYDROCHLORIDE TRIHYDRATE
     Indication: ERECTILE DYSFUNCTION
     Dosage: 20 MG, QOD
     Route: 048

REACTIONS (4)
  - Drug ineffective [None]
  - Drug ineffective [None]
  - Heart rate increased [None]
  - Vertigo [None]

NARRATIVE: CASE EVENT DATE: 201407
